FAERS Safety Report 16866838 (Version 1)
Quarter: 2019Q4

REPORT INFORMATION
  Report Type: Spontaneous
  Country: US (occurrence: US)
  Receive Date: 20190928
  Receipt Date: 20190928
  Transmission Date: 20200122
  Serious: Yes (Other)
  Sender: FDA-Public Use
  Company Number: None

PATIENT
  Age: 9 Year
  Sex: Male
  Weight: 29.25 kg

DRUGS (6)
  1. MAGNESIUM [Concomitant]
     Active Substance: MAGNESIUM
  2. PROBIOTICS [Concomitant]
     Active Substance: PROBIOTICS NOS
  3. METHYLPHENIDATE ER [Suspect]
     Active Substance: METHYLPHENIDATE
     Indication: ATTENTION DEFICIT/HYPERACTIVITY DISORDER
     Dosage: ?          QUANTITY:2 TABLET(S);?
     Route: 048
     Dates: start: 20190902
  4. SERTRALINE [Concomitant]
     Active Substance: SERTRALINE HYDROCHLORIDE
  5. FISH OIL [Concomitant]
     Active Substance: FISH OIL
  6. MULTIVITAMIN [Concomitant]
     Active Substance: VITAMINS

REACTIONS (6)
  - Product substitution issue [None]
  - Affect lability [None]
  - Depressed mood [None]
  - Anger [None]
  - Suicidal ideation [None]
  - Impulsive behaviour [None]

NARRATIVE: CASE EVENT DATE: 20190902
